FAERS Safety Report 8962577 (Version 1)
Quarter: 2012Q4

REPORT INFORMATION
  Report Type: Spontaneous
  Country: US (occurrence: None)
  Receive Date: 20121211
  Receipt Date: 20121211
  Transmission Date: 20130627
  Serious: No
  Sender: FDA-Public Use
  Company Number: None

PATIENT
  Age: 25 Year
  Sex: Male

DRUGS (3)
  1. VENLAFAXINE [Suspect]
     Indication: MOOD DISORDER NOS
     Route: 048
     Dates: start: 20120803
  2. VENLAFAXINE [Suspect]
     Indication: PERSONALITY DISORDER
     Route: 048
     Dates: start: 20120803
  3. BUPROPION SR 150 MYLAN [Concomitant]

REACTIONS (6)
  - Irritability [None]
  - Frustration [None]
  - Influenza like illness [None]
  - Paraesthesia [None]
  - Feeling abnormal [None]
  - Condition aggravated [None]
